FAERS Safety Report 16835946 (Version 2)
Quarter: 2019Q3

REPORT INFORMATION
  Report Type: Report from Study
  Country: None (occurrence: BE)
  Receive Date: 20190920
  Receipt Date: 20190924
  Transmission Date: 20191005
  Serious: Yes (Hospitalization)
  Sender: FDA-Public Use
  Company Number: BE-ABBVIE-19K-013-2925642-00

PATIENT
  Sex: Male

DRUGS (11)
  1. SERLAIN [Concomitant]
     Active Substance: SERTRALINE HYDROCHLORIDE
     Indication: PRODUCT USED FOR UNKNOWN INDICATION
  2. DUODOPA [Suspect]
     Active Substance: CARBIDOPA\LEVODOPA
     Indication: PARKINSON^S DISEASE
     Dosage: UNKNOWN DOSAGES
     Route: 050
     Dates: start: 20120625, end: 20121110
  3. DUODOPA [Suspect]
     Active Substance: CARBIDOPA\LEVODOPA
     Dosage: MD=2.4ML, CD=3.2ML/HR DURING 16HRS, ED=1ML
     Route: 050
     Dates: start: 20190828, end: 20190917
  4. CIPROXIN [Suspect]
     Active Substance: CIPROFLOXACIN
     Indication: URINARY TRACT INFECTION
     Route: 065
     Dates: start: 20190912
  5. DUODOPA [Suspect]
     Active Substance: CARBIDOPA\LEVODOPA
     Dosage: MD=2.4ML, CD=3.2ML/HR DURING 16HRS, ED=1ML
     Route: 050
     Dates: start: 20190920, end: 20190923
  6. PROLOPA HBS [Concomitant]
     Active Substance: BENSERAZIDE\LEVODOPA
     Dates: start: 20120718
  7. DUODOPA [Suspect]
     Active Substance: CARBIDOPA\LEVODOPA
     Dosage: MD=5.2ML, CD=4.2ML/HR DURING 16HRS, ED=2ML, ND=3ML/HR DURING 8HRS
     Route: 050
     Dates: start: 20121110, end: 20121114
  8. DUODOPA [Suspect]
     Active Substance: CARBIDOPA\LEVODOPA
     Dosage: DOSES CONTINUOUSLY MONITORED AND ADAPTED
     Route: 050
     Dates: start: 20121114, end: 20190828
  9. DUODOPA [Suspect]
     Active Substance: CARBIDOPA\LEVODOPA
     Dosage: MD=2.4ML, CD=3.0ML/HR DURING 16HRS, ED=1ML
     Route: 050
     Dates: start: 20190917, end: 20190920
  10. DUODOPA [Suspect]
     Active Substance: CARBIDOPA\LEVODOPA
     Dosage: MD=2.4ML, CD=3ML/HR DURING 16HRS, ED=1ML EVERY 3 HOURS
     Route: 050
     Dates: start: 20190923
  11. PROLOPA HBS [Concomitant]
     Active Substance: BENSERAZIDE\LEVODOPA
     Indication: PRODUCT USED FOR UNKNOWN INDICATION

REACTIONS (9)
  - Somnolence [Unknown]
  - Urinary tract infection [Not Recovered/Not Resolved]
  - Muscle rigidity [Unknown]
  - Confusional state [Recovered/Resolved]
  - On and off phenomenon [Unknown]
  - Parkinson^s disease [Unknown]
  - Disorientation [Recovered/Resolved]
  - Confusional state [Not Recovered/Not Resolved]
  - Freezing phenomenon [Not Recovered/Not Resolved]
